FAERS Safety Report 13774624 (Version 1)
Quarter: 2017Q3

REPORT INFORMATION
  Report Type: Spontaneous
  Country: AR (occurrence: AR)
  Receive Date: 20170721
  Receipt Date: 20170721
  Transmission Date: 20171127
  Serious: Yes (Death, Other)
  Sender: FDA-Public Use
  Company Number: PHHY2017AR102253

PATIENT
  Age: 77 Year
  Sex: Male

DRUGS (10)
  1. BICALUTAMIDE. [Suspect]
     Active Substance: BICALUTAMIDE
     Indication: METASTASES TO LUNG
  2. BICALUTAMIDE. [Suspect]
     Active Substance: BICALUTAMIDE
     Indication: METASTASES TO BONE
  3. LEUPRORELIN [Suspect]
     Active Substance: LEUPROLIDE ACETATE
     Indication: METASTASIS
  4. AMIODARONE [Concomitant]
     Active Substance: AMIODARONE
     Indication: ATRIAL FIBRILLATION
     Dosage: 300 MG, UNK
     Route: 042
  5. BICALUTAMIDE. [Suspect]
     Active Substance: BICALUTAMIDE
     Indication: PROSTATE CANCER
     Route: 065
  6. BICALUTAMIDE. [Suspect]
     Active Substance: BICALUTAMIDE
     Indication: METASTASIS
  7. LEUPRORELIN [Suspect]
     Active Substance: LEUPROLIDE ACETATE
     Indication: METASTASES TO LUNG
  8. LEUPRORELIN [Suspect]
     Active Substance: LEUPROLIDE ACETATE
     Indication: METASTASES TO BONE
  9. AMIODARONE [Concomitant]
     Active Substance: AMIODARONE
     Indication: ACUTE PULMONARY OEDEMA
  10. LEUPRORELIN [Suspect]
     Active Substance: LEUPROLIDE ACETATE
     Indication: PROSTATE CANCER
     Route: 065

REACTIONS (9)
  - Cough [Fatal]
  - Interstitial lung disease [Fatal]
  - Leukocytosis [Fatal]
  - Hypoxia [Fatal]
  - Pyrexia [Fatal]
  - Dyspnoea [Fatal]
  - Respiratory failure [Fatal]
  - Hypercalcaemia [Fatal]
  - Haemodynamic instability [Unknown]
